FAERS Safety Report 9081117 (Version 2)
Quarter: 2013Q3

REPORT INFORMATION
  Report Type: Spontaneous
  Country: AU (occurrence: AU)
  Receive Date: 20130130
  Receipt Date: 20130702
  Transmission Date: 20140515
  Serious: Yes (Death, Other)
  Sender: FDA-Public Use
  Company Number: AU-COVIDIEN/TYCO HEALTHCARE/MALLINCKRODT-T201300326

PATIENT
  Sex: Male

DRUGS (1)
  1. EXALGO EXTENDED RELEASE [Suspect]
     Indication: PAIN
     Dosage: 24 MG QD
     Route: 048

REACTIONS (5)
  - Urinary incontinence [Unknown]
  - Dehydration [Unknown]
  - Fluid retention [Unknown]
  - Headache [Unknown]
  - Drug abuse [Unknown]
